FAERS Safety Report 7523578-8 (Version None)
Quarter: 2011Q2

REPORT INFORMATION
  Report Type: 
  Country: None (occurrence: None)
  Receive Date: 20110601
  Receipt Date: 20110601
  Transmission Date: 20111010
  Serious: Yes (Other)
  Sender: FDA-Public Use
  Company Number: None

PATIENT
  Age: 15 Year
  Sex: Male
  Weight: 65.7716 kg

DRUGS (1)
  1. ISOTRETINOIN [Suspect]
     Indication: ACNE
     Dosage: 40 MIL TWICE PERDAY PO
     Route: 048
     Dates: start: 20101231, end: 20110421

REACTIONS (6)
  - WALKING AID USER [None]
  - MYALGIA [None]
  - GROWING PAINS [None]
  - GAIT DISTURBANCE [None]
  - INFLAMMATION [None]
  - BACK PAIN [None]
